FAERS Safety Report 25054168 (Version 5)
Quarter: 2025Q2

REPORT INFORMATION
  Report Type: Spontaneous
  Country: US (occurrence: US)
  Receive Date: 20250307
  Receipt Date: 20250610
  Transmission Date: 20250716
  Serious: Yes (Other)
  Sender: SANOFI AVENTIS
  Company Number: US-SA-2025SA067492

PATIENT
  Age: 63 Year
  Sex: Male

DRUGS (5)
  1. DUPIXENT [Suspect]
     Active Substance: DUPILUMAB
     Indication: Eczema
     Dosage: 300 MG, QOW
     Route: 058
     Dates: start: 202410
  2. DUPIXENT [Suspect]
     Active Substance: DUPILUMAB
     Indication: Dermatitis atopic
  3. REVLIMID [Suspect]
     Active Substance: LENALIDOMIDE
  4. NIVESTYM [Concomitant]
     Active Substance: FILGRASTIM-AAFI
  5. LENALIDOMIDE [Concomitant]
     Active Substance: LENALIDOMIDE

REACTIONS (8)
  - Atrial fibrillation [Unknown]
  - Mental status changes [Unknown]
  - General physical condition abnormal [Unknown]
  - Eczema [Recovering/Resolving]
  - Pruritus [Recovered/Resolved]
  - Skin exfoliation [Recovered/Resolved]
  - Skin swelling [Recovered/Resolved]
  - Erythema [Not Recovered/Not Resolved]

NARRATIVE: CASE EVENT DATE: 20250301
